FAERS Safety Report 5297789-9 (Version None)
Quarter: 2007Q2

REPORT INFORMATION
  Report Type: 
  Country: None (occurrence: None)
  Receive Date: 20070416
  Receipt Date: 20070403
  Transmission Date: 20071010
  Serious: Yes (Hospitalization)
  Sender: FDA-Public Use
  Company Number: PHEH2007US04339

PATIENT
  Sex: Female

DRUGS (8)
  1. ZELNORM [Suspect]
     Indication: IRRITABLE BOWEL SYNDROME
     Dosage: 6 MG, QD
     Route: 048
     Dates: start: 20060601, end: 20070403
  2. PROPRANOLOL [Concomitant]
     Indication: HYPERTENSION
     Dosage: 10 MG, TID
  3. PROPRANOLOL [Concomitant]
     Dosage: 40 MG, TID
  4. WARFARIN SODIUM [Concomitant]
  5. NEXIUM [Concomitant]
  6. PROMETRIUM [Concomitant]
  7. LYRICA [Concomitant]
  8. LUNESTA [Concomitant]

REACTIONS (3)
  - BLOOD PRESSURE INCREASED [None]
  - FALL [None]
  - UPPER LIMB FRACTURE [None]
